FAERS Safety Report 5000637-5 (Version None)
Quarter: 2006Q2

REPORT INFORMATION
  Report Type: 
  Country: None (occurrence: None)
  Receive Date: 20060512
  Receipt Date: 20060502
  Transmission Date: 20061013
  Serious: Yes (Hospitalization)
  Sender: FDA-Public Use
  Company Number: FR-AVENTIS-200611674FR

PATIENT
  Age: 1 Day
  Sex: Male

DRUGS (5)
  1. LOVENOX [Suspect]
     Route: 064
  2. CLAMOXYL [Suspect]
     Indication: STREPTOCOCCAL INFECTION
     Route: 064
     Dates: start: 20060203
  3. TRACTOCILE [Suspect]
     Indication: THREATENED LABOUR
     Route: 064
     Dates: start: 20060206, end: 20060208
  4. ADALAT [Suspect]
     Route: 064
     Dates: end: 20060206
  5. CELESTENE [Concomitant]
     Route: 064
     Dates: start: 20060203, end: 20060204

REACTIONS (1)
  - PULMONARY HYPERTENSION [None]
